FAERS Safety Report 6074809-5 (Version None)
Quarter: 2009Q1

REPORT INFORMATION
  Report Type: 
  Country: None (occurrence: None)
  Receive Date: 20090210
  Receipt Date: 20090210
  Transmission Date: 20090719
  Serious: Yes (Life-Threatening, Hospitalization)
  Sender: FDA-Public Use
  Company Number: None

PATIENT
  Age: 86 Year
  Sex: Female
  Weight: 58.9676 kg

DRUGS (2)
  1. LEXAPRO [Suspect]
     Indication: ANXIETY
     Dosage: 1/2 TABLET EVERY DAY
     Dates: start: 20081001
  2. LEXAPRO [Suspect]
     Indication: DEPRESSION
     Dosage: 1/2 TABLET EVERY DAY
     Dates: start: 20081001

REACTIONS (4)
  - ABDOMINAL PAIN UPPER [None]
  - HAEMATEMESIS [None]
  - SCREAMING [None]
  - VOMITING [None]
